FAERS Safety Report 4766802-7 (Version None)
Quarter: 2005Q3

REPORT INFORMATION
  Report Type: 
  Country: None (occurrence: None)
  Receive Date: 20050908
  Receipt Date: 20050829
  Transmission Date: 20060218
  Serious: Yes (Other)
  Sender: FDA-Public Use
  Company Number: 142358USA

PATIENT
  Age: 51 Year
  Sex: Female
  Weight: 66.2252 kg

DRUGS (7)
  1. HALOPERIDOL DECANOATE [Suspect]
     Indication: SCHIZOPHRENIA
     Dates: start: 20030926
  2. COGENTIN [Concomitant]
  3. KEPPRA [Concomitant]
  4. ALBUTEROL [Concomitant]
  5. CALCIUM CARBONATE [Concomitant]
  6. ATIVAN [Concomitant]
  7. LITHIUM [Concomitant]

REACTIONS (3)
  - DIABETES MELLITUS [None]
  - INJECTION SITE CELLULITIS [None]
  - WRONG TECHNIQUE IN DRUG USAGE PROCESS [None]
